FAERS Safety Report 5699973-9 (Version None)
Quarter: 2008Q2

REPORT INFORMATION
  Report Type: 
  Country: None (occurrence: None)
  Receive Date: 20080410
  Receipt Date: 20080403
  Transmission Date: 20081010
  Serious: Yes (Other)
  Sender: FDA-Public Use
  Company Number: ES-ABBOTT-08P-144-0445696-00

PATIENT

DRUGS (1)
  1. REMIFENTANIL [Suspect]
     Indication: FEMALE GENITAL OPERATION
     Dosage: NOT REPORTED

REACTIONS (2)
  - DRUG TOLERANCE [None]
  - HYPERAESTHESIA [None]
